FAERS Safety Report 25118053 (Version 2)
Quarter: 2025Q2

REPORT INFORMATION
  Report Type: Spontaneous
  Country: US (occurrence: US)
  Receive Date: 20250325
  Receipt Date: 20250422
  Transmission Date: 20250717
  Serious: Yes (Death, Other)
  Sender: DR REDDYS
  Company Number: None

PATIENT
  Age: 66 Year
  Sex: Male
  Weight: 96.1 kg

DRUGS (6)
  1. CAPECITABINE [Suspect]
     Active Substance: CAPECITABINE
     Indication: Actinic keratosis
     Route: 048
  2. CAPECITABINE [Suspect]
     Active Substance: CAPECITABINE
     Indication: Squamous cell carcinoma of skin
     Dosage: 500 MG AM/1000 MG PM PO X 2 CYCLES, TWO CYCLES
     Route: 048
     Dates: start: 20181227, end: 20190224
  3. TACROLIMUS [Suspect]
     Active Substance: TACROLIMUS
     Indication: Immunosuppressant drug therapy
     Dosage: 1MG AM/1.5 MG PM, CONTINUED FROM TRANSPLANT TO DEATH
     Route: 048
  4. PREDNISONE [Suspect]
     Active Substance: PREDNISONE
     Indication: Immunosuppressant drug therapy
     Dosage: 7  YEARS CONTINUED FROM TRANSPLANT TO DEATH
     Route: 048
  5. MYCOPHENOLATE MOFETIL [Suspect]
     Active Substance: MYCOPHENOLATE MOFETIL
     Indication: Immunosuppressant drug therapy
     Dosage: 7 YEARS, 1000 MG BID PO FOR 5 YEARS -} 250 MG BID PO FOR 2 YEARS, CONTINUED FROM TRANSPLANT TO DEATH
     Route: 048
  6. MYCOPHENOLATE MOFETIL [Suspect]
     Active Substance: MYCOPHENOLATE MOFETIL
     Dosage: 7 YEARS, 1000 MG BID PO FOR 5 YEARS -} 250 MG BID PO FOR 2 YEARS, CONTINUED FROM TRANSPLANT TO DEATH
     Route: 048

REACTIONS (4)
  - Metastatic squamous cell carcinoma [Fatal]
  - Squamous cell carcinoma of skin [Unknown]
  - Condition aggravated [Unknown]
  - Paradoxical drug reaction [Unknown]
